FAERS Safety Report 19788823 (Version 1)
Quarter: 2021Q3

REPORT INFORMATION
  Report Type: Other
  Country: US (occurrence: US)
  Receive Date: 20210904
  Receipt Date: 20210904
  Transmission Date: 20211014
  Serious: No
  Sender: FDA-Public Use
  Company Number: US-NEUROCRINE BIOSCIENCES INC.-2021NBI04715

PATIENT

DRUGS (1)
  1. INGREZZA [Suspect]
     Active Substance: VALBENAZINE
     Indication: CHRONIC OBSTRUCTIVE PULMONARY DISEASE
     Dosage: 40 MILLIGRAM, QD
     Route: 048
     Dates: start: 20210809

REACTIONS (4)
  - Fatigue [Unknown]
  - Somnolence [Unknown]
  - Abnormal dreams [Unknown]
  - Off label use [Unknown]

NARRATIVE: CASE EVENT DATE: 202108
